FAERS Safety Report 11529830 (Version 1)
Quarter: 2015Q3

REPORT INFORMATION
  Report Type: Spontaneous
  Country: JP (occurrence: JP)
  Receive Date: 20150921
  Receipt Date: 20150921
  Transmission Date: 20151125
  Serious: Yes (Death, Other)
  Sender: FDA-Public Use
  Company Number: JP-GLAXOSMITHKLINE-JP2015JPN131070

PATIENT
  Age: 16 Year
  Sex: Male

DRUGS (15)
  1. THEONA P [Concomitant]
     Dosage: 400 MG, 1D
  2. ASTHMOLYSIN D [Concomitant]
     Dosage: UNK
  3. ASTHMOLYSIN D [Concomitant]
     Dosage: UNK
  4. EXIREL [Concomitant]
     Dosage: 3 DF, 1D
  5. HISTAGLOBIN [Concomitant]
  6. HISTAGLOBIN [Concomitant]
  7. ISOPRO [Concomitant]
  8. SULTANOL [Suspect]
     Active Substance: ALBUTEROL SULFATE
     Route: 055
  9. THEONA P [Concomitant]
     Dosage: 200 MG, 1D
  10. AMINOPYRINE [Concomitant]
     Active Substance: AMINOPYRINE
     Route: 042
  11. BECLOMETASONE DIPROPIONATE [Concomitant]
     Active Substance: BECLOMETHASONE DIPROPIONATE
  12. THEOCOLIN [Concomitant]
     Route: 048
  13. HISTAGLOBIN [Concomitant]
  14. BOSMIN [Concomitant]
     Active Substance: EPINEPHRINE
     Route: 058
  15. ALOTEC [Concomitant]
     Route: 048

REACTIONS (7)
  - Loss of consciousness [Unknown]
  - Fall [Unknown]
  - Abnormal behaviour [Unknown]
  - Asthma [Fatal]
  - Mydriasis [Unknown]
  - Asphyxia [Fatal]
  - Cardio-respiratory arrest [Unknown]
